FAERS Safety Report 19620377 (Version 1)
Quarter: 2021Q3

REPORT INFORMATION
  Report Type: Spontaneous
  Country: CZ (occurrence: CZ)
  Receive Date: 20210728
  Receipt Date: 20210728
  Transmission Date: 20211014
  Serious: Yes (Other)
  Sender: FDA-Public Use
  Company Number: CZ-ROCHE-2877959

PATIENT
  Age: 65 Year
  Sex: Male

DRUGS (4)
  1. LUCENTIS [Suspect]
     Active Substance: RANIBIZUMAB
     Dosage: (0.5/0.05 MG/ML),
     Route: 031
     Dates: start: 20190424, end: 20191030
  2. LUCENTIS [Suspect]
     Active Substance: RANIBIZUMAB
     Dosage: (0.5/0.05 MG/ML), Q4W
     Route: 031
  3. LUCENTIS [Suspect]
     Active Substance: RANIBIZUMAB
     Indication: AGE-RELATED MACULAR DEGENERATION
     Route: 065
  4. LUCENTIS [Suspect]
     Active Substance: RANIBIZUMAB
     Dosage: (0.5/0.05 MG/ML), Q4W
     Route: 031
     Dates: start: 20190424, end: 20191030

REACTIONS (4)
  - Subretinal fluid [Unknown]
  - Drug ineffective [Unknown]
  - Choroidal neovascularisation [Unknown]
  - Choroidal effusion [Unknown]

NARRATIVE: CASE EVENT DATE: 20191030
